FAERS Safety Report 23515811 (Version 1)
Quarter: 2024Q1

REPORT INFORMATION
  Report Type: Report from Study
  Country: CA (occurrence: CA)
  Receive Date: 20240213
  Receipt Date: 20240213
  Transmission Date: 20240410
  Serious: Yes (Other)
  Sender: FDA-Public Use
  Company Number: CA-CELLTRION INC.-2024CA003185

PATIENT

DRUGS (3)
  1. BEVACIZUMAB [Suspect]
     Active Substance: BEVACIZUMAB
     Indication: Exudative retinopathy
     Dosage: INITIAL TREATMENT
  2. BEVACIZUMAB [Suspect]
     Active Substance: BEVACIZUMAB
     Dosage: ONE INJECTION OF BEVACIZUMAB POST-VITRECTOMY TO ADDRESS THE RETINAL EXUDATION
  3. BEVACIZUMAB [Suspect]
     Active Substance: BEVACIZUMAB
     Dosage: BEVACIZUMAB INJECTIONS EVERY 8 WEEKS SINCE EXUDATION WAS STILL PRESENT AND LEAKING IN THE PATHOLOGIC

REACTIONS (2)
  - Tractional retinal detachment [Recovered/Resolved]
  - Drug effective for unapproved indication [Unknown]
